FAERS Safety Report 8346062-0 (Version None)
Quarter: 2012Q2

REPORT INFORMATION
  Report Type: 
  Country: None (occurrence: None)
  Receive Date: 20120509
  Receipt Date: 20120501
  Transmission Date: 20120825
  Serious: No
  Sender: FDA-Public Use
  Company Number: US-PFIZER INC-2012107848

PATIENT
  Sex: Male

DRUGS (1)
  1. INLYTA [Suspect]
     Indication: RENAL CANCER
     Dosage: 5 MG, 1XDAY
     Dates: start: 20120221

REACTIONS (6)
  - OROPHARYNGEAL PAIN [None]
  - NAUSEA [None]
  - PAIN [None]
  - DECREASED APPETITE [None]
  - ASTHENIA [None]
  - BLOOD GLUCOSE INCREASED [None]
